FAERS Safety Report 7371384-X (Version None)
Quarter: 2011Q1

REPORT INFORMATION
  Report Type: 
  Country: None (occurrence: None)
  Receive Date: 20110324
  Receipt Date: 20110314
  Transmission Date: 20110831
  Serious: Yes (Death, Other)
  Sender: FDA-Public Use
  Company Number: FR-CELGENEUS-056-21880-11031731

PATIENT

DRUGS (7)
  1. REVLIMID [Suspect]
     Route: 048
  2. ARA-C [Concomitant]
     Dosage: 200 MILLIGRAM/SQ. METER
     Route: 065
  3. DAUNORUBICIN [Concomitant]
     Dosage: 60 MILLIGRAM/SQ. METER
     Route: 065
  4. REVLIMID [Suspect]
     Dosage: 10 MILLIGRAM
     Route: 048
  5. DAUNORUBICIN [Concomitant]
     Dosage: 45 MILLIGRAM/SQ. METER
     Route: 065
  6. ARA-C [Concomitant]
  7. REVLIMID [Suspect]
     Dosage: 10 MILLIGRAM
     Route: 048

REACTIONS (3)
  - DEATH [None]
  - MYELODYSPLASTIC SYNDROME [None]
  - ACUTE MYELOID LEUKAEMIA [None]
